FAERS Safety Report 19428020 (Version 1)
Quarter: 2021Q2

REPORT INFORMATION
  Report Type: Other
  Country: US (occurrence: US)
  Receive Date: 20210616
  Receipt Date: 20210616
  Transmission Date: 20210717
  Serious: No
  Sender: FDA-Public Use
  Company Number: US-ROCHE-2741626

PATIENT
  Age: 69 Year
  Sex: Female

DRUGS (12)
  1. KETAMINE [Concomitant]
     Active Substance: KETAMINE
  2. LEVETIRACETAM. [Concomitant]
     Active Substance: LEVETIRACETAM
  3. PROPOFOL. [Concomitant]
     Active Substance: PROPOFOL
     Dosage: 40 MICROGRAM/KG/MIN
  4. TOCILIZUMAB. [Suspect]
     Active Substance: TOCILIZUMAB
     Indication: COVID-19
     Route: 065
  5. TACROLIMUS. [Concomitant]
     Active Substance: TACROLIMUS
  6. MIDAZOLAM. [Concomitant]
     Active Substance: MIDAZOLAM
  7. CLOBAZAM. [Concomitant]
     Active Substance: CLOBAZAM
  8. LACOSAMIDE. [Concomitant]
     Active Substance: LACOSAMIDE
  9. CLONAZEPAM. [Concomitant]
     Active Substance: CLONAZEPAM
  10. LACOSAMIDE. [Concomitant]
     Active Substance: LACOSAMIDE
  11. LEVETIRACETAM. [Concomitant]
     Active Substance: LEVETIRACETAM
  12. PREDNISONE. [Concomitant]
     Active Substance: PREDNISONE

REACTIONS (3)
  - Intentional product use issue [Unknown]
  - No adverse event [Unknown]
  - Off label use [Unknown]
